FAERS Safety Report 19333084 (Version 4)
Quarter: 2021Q2

REPORT INFORMATION
  Report Type: Spontaneous
  Country: PL (occurrence: PL)
  Receive Date: 20210529
  Receipt Date: 20210630
  Transmission Date: 20210717
  Serious: Yes (Hospitalization, Other)
  Sender: FDA-Public Use
  Company Number: PL-AUROBINDO-AUR-APL-2021-020601

PATIENT
  Age: 39 Year
  Sex: Male

DRUGS (23)
  1. SPIRONOLACTONE. [Suspect]
     Active Substance: SPIRONOLACTONE
     Indication: HYPERTENSION
     Dosage: UNK (1 ? 25 MG)
     Route: 065
  2. TICAGRELOR. [Suspect]
     Active Substance: TICAGRELOR
     Dosage: 20 MILLIGRAMFREQUENCY: 2 (UNKNOWN UNIT), 20 MG
     Route: 048
  3. IVABRADINE FILM COATED TABLETS [Suspect]
     Active Substance: IVABRADINE
     Dosage: UNK
     Route: 065
  4. ATORVASTATIN [Suspect]
     Active Substance: ATORVASTATIN
     Indication: HYPERCHOLESTEROLAEMIA
     Dosage: 80 MILLIGRAM, ONCE A DAY 80 MG / DOSE TEXT: FREQUENCY: 1 (UNKNOWN UNIT)
     Route: 065
  5. EZETIMIBE. [Suspect]
     Active Substance: EZETIMIBE
     Indication: LOW DENSITY LIPOPROTEIN
  6. IVABRADINE FILM COATED TABLETS [Suspect]
     Active Substance: IVABRADINE
     Indication: MYOCARDIAL ISCHAEMIA
     Dosage: 7.5 MILLIGRAM, 2 TIMES PER DAY
     Route: 065
  7. RAMIPRIL. [Suspect]
     Active Substance: RAMIPRIL
     Dosage: UNK / DOSE TEXT: FREQUENCY: 1 (UNKNOWN UNIT)
     Route: 065
  8. TICAGRELOR. [Suspect]
     Active Substance: TICAGRELOR
     Dosage: 2 INTO 90MG
     Route: 048
  9. ACETYLSALICYLIC ACID;ATORVASTATIN;CLOPIDOGREL [Suspect]
     Active Substance: ASPIRIN\ATORVASTATIN\CLOPIDOGREL
     Indication: PRODUCT USED FOR UNKNOWN INDICATION
     Dosage: 40 MILLIGRAM, UNK
     Route: 065
  10. BISOPROLOL [Suspect]
     Active Substance: BISOPROLOL
     Indication: HYPERTENSION
     Dosage: 10 MILLIGRAM, ONCE A DAY
     Route: 065
  11. INSULIN [Suspect]
     Active Substance: INSULIN NOS
     Indication: DIABETES MELLITUS
     Dosage: UNK
     Route: 065
  12. INSULIN [Suspect]
     Active Substance: INSULIN NOS
     Dosage: INTENSIVE THERAPY
     Route: 065
  13. ACETYLSALICYLIC ACID;ATORVASTATIN;CLOPIDOGREL [Suspect]
     Active Substance: ASPIRIN\ATORVASTATIN\CLOPIDOGREL
     Dosage: 80 MILLIGRAM, UNK
     Route: 065
  14. ATORVASTATIN [Suspect]
     Active Substance: ATORVASTATIN
     Indication: HYPERLIPIDAEMIA
     Dosage: 40 MILLIGRAM 40 MG, QD
     Route: 065
  15. EZETIMIBE. [Suspect]
     Active Substance: EZETIMIBE
     Indication: BLOOD CHOLESTEROL INCREASED
  16. ATORVASTATIN [Suspect]
     Active Substance: ATORVASTATIN
     Dosage: FREQUENCY: 1 (UNKNOWN UNIT)
     Route: 065
  17. EZETIMIBE. [Suspect]
     Active Substance: EZETIMIBE
     Indication: BLOOD TRIGLYCERIDES INCREASED
     Dosage: UNK
     Route: 065
  18. RAMIPRIL. [Suspect]
     Active Substance: RAMIPRIL
     Indication: HYPERTENSION
     Dosage: 5 MILLIGRAM, ONCE A DAY
     Route: 048
  19. FUROSEMIDE. [Suspect]
     Active Substance: FUROSEMIDE
     Indication: HYPERTENSION
     Dosage: 1 DOSAGE FORM, ONCE A DAY
     Route: 042
  20. SPIRONOLACTONE. [Suspect]
     Active Substance: SPIRONOLACTONE
     Dosage: 25 MILLIGRAM, ONCE A DAY 25 MG, QD
     Route: 065
  21. TICAGRELOR. [Suspect]
     Active Substance: TICAGRELOR
     Indication: ANTIPLATELET THERAPY
     Dosage: 90 MILLIGRAM,2 TIMES PER DAY
     Route: 065
  22. ACETYLSALICYLIC ACID [Suspect]
     Active Substance: ASPIRIN
     Indication: MYOCARDIAL ISCHAEMIA
     Dosage: 75 MILLIGRAM, ONCE A DAY FREQUENCY: 1 (UNKNOWN UNIT) 75 MG / UNK
     Route: 065
  23. INSULIN [Suspect]
     Active Substance: INSULIN NOS
     Dosage: INTENSIVE THERAPY
     Route: 065

REACTIONS (7)
  - Angina unstable [Unknown]
  - Angina pectoris [Unknown]
  - Treatment failure [Unknown]
  - Low density lipoprotein increased [Unknown]
  - Blood triglycerides increased [Unknown]
  - ECG signs of myocardial ischaemia [Unknown]
  - Drug ineffective [Unknown]
